FAERS Safety Report 18960991 (Version 1)
Quarter: 2021Q1

REPORT INFORMATION
  Report Type: Spontaneous
  Country: US (occurrence: US)
  Receive Date: 20210302
  Receipt Date: 20210302
  Transmission Date: 20210420
  Serious: No
  Sender: FDA-Public Use
  Company Number: US-NOVOPROD-759022

PATIENT
  Sex: Female
  Weight: 58.96 kg

DRUGS (3)
  1. SAXENDA [Suspect]
     Active Substance: LIRAGLUTIDE
     Indication: PRODUCT USED FOR UNKNOWN INDICATION
     Dosage: UNK
     Route: 058
     Dates: start: 2019
  2. SAXENDA [Suspect]
     Active Substance: LIRAGLUTIDE
     Dosage: UNK
     Route: 058
     Dates: start: 202009, end: 2020
  3. SAXENDA [Suspect]
     Active Substance: LIRAGLUTIDE
     Dosage: 3 MG
     Route: 058
     Dates: start: 2020

REACTIONS (2)
  - Weight increased [Unknown]
  - Weight loss poor [Not Recovered/Not Resolved]

NARRATIVE: CASE EVENT DATE: 202009
